FAERS Safety Report 5875996-1 (Version None)
Quarter: 2008Q3

REPORT INFORMATION
  Report Type: 
  Country: None (occurrence: None)
  Receive Date: 20080828
  Receipt Date: 20080828
  Transmission Date: 20090109
  Serious: Yes (Disabling)
  Sender: FDA-Public Use
  Company Number: None

PATIENT
  Age: 58 Year
  Sex: Female
  Weight: 65.7716 kg

DRUGS (4)
  1. CREST PRO-HEALTH      PROCTER + GAMBLE [Suspect]
     Indication: BREATH ODOUR
     Dosage: HALF A CAPSULE TWICE A DAY
     Dates: start: 20080501, end: 20080812
  2. CREST PRO-HEALTH      PROCTER + GAMBLE [Suspect]
     Indication: DENTAL PLAQUE
     Dosage: HALF A CAPSULE TWICE A DAY
     Dates: start: 20080501, end: 20080812
  3. CREST PRO-HEALTH      PROCTER + GAMBLE [Suspect]
     Indication: GINGIVITIS
     Dosage: HALF A CAPSULE TWICE A DAY
     Dates: start: 20080501, end: 20080812
  4. CREST PRO-HEALTH      PROCTER + GAMBLE [Suspect]
     Indication: PROPHYLAXIS
     Dosage: HALF A CAPSULE TWICE A DAY
     Dates: start: 20080501, end: 20080812

REACTIONS (2)
  - MOUTH HAEMORRHAGE [None]
  - TOOTH DISCOLOURATION [None]
